FAERS Safety Report 10598594 (Version 2)
Quarter: 2014Q4

REPORT INFORMATION
  Report Type: Report from Study
  Country: CN (occurrence: CN)
  Receive Date: 20141121
  Receipt Date: 20141201
  Transmission Date: 20150529
  Serious: Yes (Other)
  Sender: FDA-Public Use
  Company Number: CN-PFIZER INC-2014317062

PATIENT

DRUGS (2)
  1. VORICONAZOLE. [Suspect]
     Active Substance: VORICONAZOLE
     Indication: FUNGAL INFECTION
  2. CYCLOSPORINE A [Interacting]
     Active Substance: CYCLOSPORINE
     Indication: GRAFT VERSUS HOST DISEASE
     Dosage: 1.5 MG/KG, DAILY

REACTIONS (3)
  - Drug interaction [Recovered/Resolved]
  - Liver injury [Recovered/Resolved]
  - Epilepsy [Recovered/Resolved]
